FAERS Safety Report 4859958-9 (Version None)
Quarter: 2005Q4

REPORT INFORMATION
  Report Type: 
  Country: None (occurrence: None)
  Receive Date: 20051219
  Receipt Date: 20051209
  Transmission Date: 20060501
  Serious: Yes (Other)
  Sender: FDA-Public Use
  Company Number: CA-BRISTOL-MYERS SQUIBB COMPANY-13217773

PATIENT
  Age: 65 Year
  Sex: Female

DRUGS (19)
  1. TEQUIN [Suspect]
     Route: 048
  2. ARANESP [Concomitant]
  3. ASPIRIN [Concomitant]
  4. ATIVAN [Concomitant]
  5. CALCITRIOL [Concomitant]
  6. CARDIZEM [Concomitant]
  7. CELLCEPT [Concomitant]
  8. COLACE [Concomitant]
  9. CYCLOSPORINE [Concomitant]
  10. FOLIC ACID [Concomitant]
  11. IRON DEXTRAN [Concomitant]
  12. LACTULOSE [Concomitant]
  13. LOPRESSOR [Concomitant]
  14. LOSEC [Concomitant]
  15. PRAVACHOL [Concomitant]
  16. PREDNISONE TAB [Concomitant]
  17. REPLAVITE [Concomitant]
  18. SERAX [Concomitant]
  19. TUMS [Concomitant]

REACTIONS (1)
  - HYPERGLYCAEMIA [None]
